FAERS Safety Report 18375166 (Version 1)
Quarter: 2020Q4

REPORT INFORMATION
  Report Type: Report from Study
  Country: None (occurrence: US)
  Receive Date: 20201012
  Receipt Date: 20201012
  Transmission Date: 20210114
  Serious: Yes (Other)
  Sender: FDA-Public Use
  Company Number: US-ABBVIE-20K-163-3598607-00

PATIENT
  Age: 55 Year

DRUGS (1)
  1. MAVYRET [Suspect]
     Active Substance: GLECAPREVIR\PIBRENTASVIR
     Indication: HEPATITIS C
     Route: 048

REACTIONS (6)
  - Hepatic cirrhosis [Unknown]
  - Cerebrovascular accident [Unknown]
  - Fear [Unknown]
  - Depression [Unknown]
  - Type 2 diabetes mellitus [Unknown]
  - Feeling of despair [Unknown]

NARRATIVE: CASE EVENT DATE: 2020
